FAERS Safety Report 19058006 (Version 1)
Quarter: 2021Q1

REPORT INFORMATION
  Report Type: Spontaneous
  Country: US (occurrence: US)
  Receive Date: 20210324
  Receipt Date: 20210324
  Transmission Date: 20210420
  Serious: No
  Sender: FDA-Public Use
  Company Number: US-CELGENEUS-USA-20210304948

PATIENT
  Sex: Female

DRUGS (3)
  1. REVLIMID [Suspect]
     Active Substance: LENALIDOMIDE
     Dosage: 5 MILLIGRAM
     Route: 048
     Dates: start: 202102
  2. REVLIMID [Suspect]
     Active Substance: LENALIDOMIDE
     Indication: PLASMA CELL MYELOMA
     Dosage: 15 MILLIGRAM
     Route: 048
     Dates: start: 202005
  3. REVLIMID [Suspect]
     Active Substance: LENALIDOMIDE
     Dosage: 10?15 MILLIGRAM
     Route: 048
     Dates: start: 202007

REACTIONS (2)
  - Nausea [Unknown]
  - Night sweats [Unknown]
